FAERS Safety Report 8499512 (Version 2)
Quarter: 2013Q2

REPORT INFORMATION
  Report Type: Spontaneous
  Country: US (occurrence: None)
  Receive Date: 20120322
  Receipt Date: 20120621
  Transmission Date: 20140414
  Serious: Yes (Death)
  Sender: FDA-Public Use
  Company Number: UTC-014982

PATIENT
  Age: 62 Year
  Sex: Female

DRUGS (3)
  1. TYVASO [Suspect]
     Indication: SYSTEMIC SCLEROSIS
     Dosage: 18-54 MICROGRAMS,(4 IN 1 D) ,INHALATION
     Route: 055
     Dates: start: 20110408
  2. LETAIRIS [Concomitant]
  3. DIRETICS (DIURETICS) [Concomitant]

REACTIONS (2)
  - INTERSTITIAL LUNG DISEASE [None]
  - Condition aggravated [None]
